APPROVED DRUG PRODUCT: LINEZOLID
Active Ingredient: LINEZOLID
Strength: 600MG/300ML (2MG/ML)
Dosage Form/Route: SOLUTION;INTRAVENOUS
Application: A200222 | Product #001
Applicant: TEVA PHARMACEUTICALS USA
Approved: Jun 27, 2012 | RLD: No | RS: No | Type: DISCN